FAERS Safety Report 9727953 (Version 2)
Quarter: 2013Q4

REPORT INFORMATION
  Report Type: Spontaneous
  Country: BR (occurrence: BR)
  Receive Date: 20131204
  Receipt Date: 20131204
  Transmission Date: 20140711
  Serious: Yes (Hospitalization)
  Sender: FDA-Public Use
  Company Number: BR-BRISTOL-MYERS SQUIBB COMPANY-19703404

PATIENT
  Age: 69 Year
  Sex: Male
  Weight: 62 kg

DRUGS (4)
  1. COUMADIN TABS 2.5 MG [Suspect]
     Indication: THROMBOSIS
     Dosage: 1 DF= 1 TAB + HALF OF 2.5 MG TAB. RESTARTED:22NV13
     Route: 048
     Dates: start: 2005
  2. SINVASTACOR [Concomitant]
     Indication: BLOOD CHOLESTEROL INCREASED
  3. LOSARTAN POTASSIUM [Concomitant]
     Indication: HYPERTENSION
     Dosage: 2 TABLET
     Route: 048
  4. SIMVASTATIN [Concomitant]
     Indication: PROPHYLAXIS
     Route: 048

REACTIONS (3)
  - Hip fracture [Recovered/Resolved]
  - Fall [Recovered/Resolved]
  - Tooth disorder [Unknown]
